FAERS Safety Report 4725117-3 (Version None)
Quarter: 2005Q3

REPORT INFORMATION
  Report Type: 
  Country: None (occurrence: None)
  Receive Date: 20050726
  Receipt Date: 20050715
  Transmission Date: 20060218
  Serious: Yes (Disabling)
  Sender: FDA-Public Use
  Company Number: 005251

PATIENT
  Sex: Female
  Weight: 83.9 kg

DRUGS (14)
  1. HYDROXYUREA [Suspect]
     Indication: PLATELET COUNT INCREASED
     Dosage: SEE IMAGE, ORAL
     Route: 048
     Dates: start: 20050301, end: 20050411
  2. HYDROXYUREA [Suspect]
     Indication: POLYCYTHAEMIA VERA
     Dosage: SEE IMAGE, ORAL
     Route: 048
     Dates: start: 20050301, end: 20050411
  3. HYDROXYUREA [Suspect]
     Indication: PLATELET COUNT INCREASED
     Dosage: SEE IMAGE, ORAL
     Route: 048
     Dates: start: 20050412, end: 20050629
  4. HYDROXYUREA [Suspect]
     Indication: POLYCYTHAEMIA VERA
     Dosage: SEE IMAGE, ORAL
     Route: 048
     Dates: start: 20050412, end: 20050629
  5. HYDROXYUREA [Suspect]
     Indication: PLATELET COUNT INCREASED
     Dosage: SEE IMAGE, ORAL
     Route: 048
     Dates: start: 20050630
  6. HYDROXYUREA [Suspect]
     Indication: POLYCYTHAEMIA VERA
     Dosage: SEE IMAGE, ORAL
     Route: 048
     Dates: start: 20050630
  7. DIPYRIDAMOLE [Concomitant]
  8. ALBUTEROL [Concomitant]
  9. COMPAZINE [Concomitant]
  10. HYDROCHLOROTHIAZIDE [Concomitant]
  11. GLUCOPHAGE [Concomitant]
  12. AVANDIA [Concomitant]
  13. GEMFIBROZIL [Concomitant]
  14. GLIPIZIDE [Concomitant]

REACTIONS (2)
  - AGEUSIA [None]
  - ANOSMIA [None]
